FAERS Safety Report 23449024 (Version 2)
Quarter: 2024Q1

REPORT INFORMATION
  Report Type: Report from Study
  Country: US (occurrence: US)
  Receive Date: 20240128
  Receipt Date: 20240204
  Transmission Date: 20240410
  Serious: No
  Sender: FDA-Public Use
  Company Number: US-ABBVIE-5597410

PATIENT
  Age: 65 Year
  Sex: Female

DRUGS (6)
  1. RINVOQ [Suspect]
     Active Substance: UPADACITINIB
     Indication: Psoriatic arthropathy
     Dosage: FORM STRENGTH: 15 MG
     Route: 048
     Dates: start: 2022, end: 202305
  2. RINVOQ [Suspect]
     Active Substance: UPADACITINIB
     Indication: Psoriatic arthropathy
     Dosage: FORM STRENGTH: 15 MG
     Route: 048
     Dates: start: 202312
  3. RINVOQ [Suspect]
     Active Substance: UPADACITINIB
     Indication: Psoriatic arthropathy
     Dosage: FIRST ADMIN DATE: 2023?FORM STRENGTH: 15 MG
     Route: 048
     Dates: end: 202311
  4. METHOTREXATE [Concomitant]
     Active Substance: METHOTREXATE
     Indication: Product used for unknown indication
  5. VITAMINS [Concomitant]
     Active Substance: VITAMINS
     Indication: Product used for unknown indication
  6. AUGMENTIN [Suspect]
     Active Substance: AMOXICILLIN\CLAVULANATE POTASSIUM
     Indication: Pharyngitis streptococcal
     Dosage: LAST ADMIN DATE: 2023
     Route: 065
     Dates: start: 202311

REACTIONS (15)
  - Tonsillar hypertrophy [Recovered/Resolved]
  - Pyrexia [Recovered/Resolved]
  - Headache [Recovered/Resolved]
  - Unevaluable event [Unknown]
  - Oxygen saturation decreased [Recovered/Resolved]
  - Pain [Recovered/Resolved]
  - Nausea [Recovered/Resolved]
  - Nasopharyngitis [Recovered/Resolved]
  - Cough [Recovered/Resolved]
  - Off label use [Not Recovered/Not Resolved]
  - Pain [Recovered/Resolved]
  - Pharyngitis streptococcal [Recovered/Resolved]
  - Upper respiratory tract infection [Recovered/Resolved]
  - SARS-CoV-2 test positive [Recovered/Resolved]
  - Rash [Unknown]

NARRATIVE: CASE EVENT DATE: 20230201
